FAERS Safety Report 4368507-3 (Version None)
Quarter: 2004Q2

REPORT INFORMATION
  Report Type: 
  Country: None (occurrence: None)
  Receive Date: 20040602
  Receipt Date: 20040115
  Transmission Date: 20050107
  Serious: No
  Sender: FDA-Public Use
  Company Number: US-GLAXOSMITHKLINE-A0493455A

PATIENT
  Age: 3 Year
  Sex: Male

DRUGS (1)
  1. AUGMENTIN ES-600 [Suspect]
     Indication: ILL-DEFINED DISORDER
     Dosage: 1TSP TWICE PER DAY
     Route: 048
     Dates: start: 20040114

REACTIONS (1)
  - VOMITING [None]
